FAERS Safety Report 11696936 (Version 1)
Quarter: 2015Q4

REPORT INFORMATION
  Report Type: Spontaneous
  Country: FR (occurrence: FR)
  Receive Date: 20151104
  Receipt Date: 20151104
  Transmission Date: 20160304
  Serious: Yes (Other)
  Sender: FDA-Public Use
  Company Number: FR-JNJFOC-20151015682

PATIENT
  Age: 40 Year
  Sex: Male

DRUGS (4)
  1. TALOXA [Suspect]
     Active Substance: FELBAMATE
     Indication: ACCIDENTAL EXPOSURE TO PRODUCT
     Route: 048
     Dates: start: 20151014, end: 20151014
  2. URBANYL [Suspect]
     Active Substance: CLOBAZAM
     Indication: ACCIDENTAL EXPOSURE TO PRODUCT
     Route: 048
     Dates: start: 20151014, end: 20151014
  3. RISPERDAL [Suspect]
     Active Substance: RISPERIDONE
     Indication: ACCIDENTAL EXPOSURE TO PRODUCT
     Route: 048
     Dates: start: 20151014, end: 20151014
  4. PAROXETINE  HCL [Suspect]
     Active Substance: PAROXETINE HYDROCHLORIDE
     Indication: ACCIDENTAL EXPOSURE TO PRODUCT
     Route: 048
     Dates: start: 20151014, end: 20151014

REACTIONS (2)
  - Epilepsy [Recovered/Resolved]
  - Drug dispensed to wrong patient [Recovered/Resolved]

NARRATIVE: CASE EVENT DATE: 20151014
